FAERS Safety Report 17919718 (Version 2)
Quarter: 2021Q1

REPORT INFORMATION
  Report Type: Report from Study
  Country: US (occurrence: US)
  Receive Date: 20200619
  Receipt Date: 20210303
  Transmission Date: 20210419
  Serious: Yes (Hospitalization, Other)
  Sender: FDA-Public Use
  Company Number: NVSC2020US171722

PATIENT
  Age: 57 Year
  Sex: Female

DRUGS (1)
  1. COSENTYX [Suspect]
     Active Substance: SECUKINUMAB
     Indication: PSORIASIS
     Dosage: 300 MG, QMO
     Route: 058
     Dates: start: 20191017

REACTIONS (2)
  - Haematochezia [Unknown]
  - Cyst rupture [Unknown]

NARRATIVE: CASE EVENT DATE: 20200618
